FAERS Safety Report 17303522 (Version 1)
Quarter: 2020Q1

REPORT INFORMATION
  Report Type: Spontaneous
  Country: US (occurrence: US)
  Receive Date: 20200122
  Receipt Date: 20200122
  Transmission Date: 20200409
  Serious: Yes (Other)
  Sender: FDA-Public Use
  Company Number: US-AGIOS-2001US01621

PATIENT

DRUGS (5)
  1. TIBSOVO [Suspect]
     Active Substance: IVOSIDENIB
     Dosage: 500 MILLIGRAM PER DAY
  2. CYTARABINE. [Concomitant]
     Active Substance: CYTARABINE
     Indication: ACUTE UNDIFFERENTIATED LEUKAEMIA
     Dosage: 100 MILLIGRAM/SQ. METER, 24-HOUR CONTINUOUS IV INFUSION
     Route: 042
  3. AMINOCAPROIC ACID. [Concomitant]
     Active Substance: AMINOCAPROIC ACID
     Indication: PLATELET COUNT DECREASED
  4. DAUNORUBICIN [Concomitant]
     Active Substance: DAUNORUBICIN
     Indication: ACUTE UNDIFFERENTIATED LEUKAEMIA
     Dosage: 60 MILLIGRAM/SQUARE METER/DAY, UNK
     Route: 042
  5. TIBSOVO [Suspect]
     Active Substance: IVOSIDENIB
     Indication: ACUTE UNDIFFERENTIATED LEUKAEMIA
     Dosage: 500 MILLIGRAM PER DAY
     Route: 065

REACTIONS (6)
  - Pulmonary alveolar haemorrhage [Recovered/Resolved]
  - Hypoxia [Recovered/Resolved]
  - Incorrect route of product administration [Recovered/Resolved]
  - Off label use [Not Recovered/Not Resolved]
  - Dyspnoea [Recovered/Resolved]
  - Fluid overload [Recovered/Resolved]
